FAERS Safety Report 6618806-7 (Version None)
Quarter: 2010Q1

REPORT INFORMATION
  Report Type: 
  Country: None (occurrence: None)
  Receive Date: 20100308
  Receipt Date: 20100222
  Transmission Date: 20100710
  Serious: Yes (Other)
  Sender: FDA-Public Use
  Company Number: US-CELGENEUS-163-20785-10011804

PATIENT
  Sex: Female

DRUGS (3)
  1. THALOMID [Suspect]
     Indication: MYELODYSPLASTIC SYNDROME
     Route: 048
     Dates: start: 20091201
  2. THALOMID [Suspect]
     Dosage: 100MG-50MG
     Route: 048
     Dates: start: 20090901
  3. THALOMID [Suspect]
     Dosage: 100MG-50MG
     Route: 048
     Dates: start: 20080601

REACTIONS (1)
  - DEMENTIA ALZHEIMER'S TYPE [None]
